FAERS Safety Report 7634064-9 (Version None)
Quarter: 2011Q3

REPORT INFORMATION
  Report Type: 
  Country: None (occurrence: None)
  Receive Date: 20110725
  Receipt Date: 20110715
  Transmission Date: 20111222
  Serious: Yes (Other)
  Sender: FDA-Public Use
  Company Number: DE-ABBOTT-11P-062-0835984-00

PATIENT
  Age: 91 Year
  Sex: Male

DRUGS (3)
  1. LEUPROLIDE ACETATE [Suspect]
     Indication: PROSTATIC SPECIFIC ANTIGEN INCREASED
     Route: 058
     Dates: start: 20110224
  2. LEUPROLIDE ACETATE [Suspect]
     Indication: PROSTATE CANCER
  3. CYPROTERONE [Concomitant]
     Indication: ANTIANDROGEN THERAPY
     Route: 048

REACTIONS (1)
  - NO ADVERSE EVENT [None]
